FAERS Safety Report 22614898 (Version 3)
Quarter: 2023Q2

REPORT INFORMATION
  Report Type: Report from Study
  Country: US (occurrence: US)
  Receive Date: 20230619
  Receipt Date: 20230623
  Transmission Date: 20230721
  Serious: No
  Sender: FDA-Public Use
  Company Number: US-002147023-NVSC2023US135237

PATIENT
  Sex: Female
  Weight: 70 kg

DRUGS (14)
  1. TRIAMCINOLONE ACETONIDE [Suspect]
     Active Substance: TRIAMCINOLONE ACETONIDE
     Indication: Product used for unknown indication
     Dosage: UNK
     Route: 065
  2. EZETIMIBE [Suspect]
     Active Substance: EZETIMIBE
     Indication: Psoriasis
     Dosage: UNK
     Route: 065
  3. HYDROCHLOROTHIAZIDE [Suspect]
     Active Substance: HYDROCHLOROTHIAZIDE
     Indication: Psoriasis
     Dosage: UNK
     Route: 065
  4. NITROGLYCERIN [Suspect]
     Active Substance: NITROGLYCERIN
     Indication: Psoriasis
     Dosage: UNK
     Route: 065
  5. PANTOPRAZOLE [Suspect]
     Active Substance: PANTOPRAZOLE
     Indication: Psoriasis
     Dosage: UNK
     Route: 065
  6. ROSUVASTATIN [Suspect]
     Active Substance: ROSUVASTATIN
     Indication: Psoriasis
     Dosage: UNK
     Route: 065
  7. ALBUTEROL SULFATE [Suspect]
     Active Substance: ALBUTEROL SULFATE
     Indication: Psoriasis
     Dosage: UNK
     Route: 065
  8. LEVOTHYROXINE [Suspect]
     Active Substance: LEVOTHYROXINE
     Indication: Psoriasis
     Dosage: UNK
     Route: 065
  9. APIXABAN [Suspect]
     Active Substance: APIXABAN
     Indication: Psoriasis
     Dosage: UNK
     Route: 065
  10. CLONIDINE [Suspect]
     Active Substance: CLONIDINE
     Indication: Psoriasis
     Route: 065
  11. LISINOPRIL [Suspect]
     Active Substance: LISINOPRIL
     Indication: Psoriasis
     Dosage: UNK
     Route: 065
  12. TRAMADOL [Suspect]
     Active Substance: TRAMADOL
     Indication: Psoriasis
     Dosage: UNK
     Route: 065
  13. TRETINOIN [Suspect]
     Active Substance: TRETINOIN
     Indication: Psoriasis
     Dosage: UNK
     Route: 065
  14. VITAMIN B [Suspect]
     Active Substance: VITAMIN B
     Indication: Psoriasis
     Dosage: UNK
     Route: 065

REACTIONS (2)
  - Pain [Unknown]
  - Drug ineffective for unapproved indication [Unknown]
